FAERS Safety Report 6757563-0 (Version None)
Quarter: 2010Q2

REPORT INFORMATION
  Report Type: 
  Country: None (occurrence: None)
  Receive Date: 20100607
  Receipt Date: 20100525
  Transmission Date: 20101027
  Serious: Yes (Disabling, Other)
  Sender: FDA-Public Use
  Company Number: US-ELI_LILLY_AND_COMPANY-US200906002405

PATIENT
  Sex: Female

DRUGS (14)
  1. FORTEO [Suspect]
     Indication: OSTEOPOROSIS
     Dosage: 20 UG, DAILY (1/D)
     Dates: start: 20090501
  2. GLIMEPIRIDE [Concomitant]
     Dosage: 1 MG, DAILY (1/D)
  3. ZETIA [Concomitant]
     Dosage: 10 MG, DAILY (1/D)
  4. RAMIPRIL [Concomitant]
     Dosage: 10 MG, DAILY (1/D)
  5. ALPHAGAN [Concomitant]
     Dosage: UNK, 2/D
  6. XALATAN [Concomitant]
     Dosage: 0.005 UNK, EVERY 8 HRS
  7. TRAMADOL HCL [Concomitant]
  8. TRIAMTERENE AND HYDROCHLOROTHIAZIDE [Concomitant]
  9. ASPIRIN [Concomitant]
     Dosage: 81 MG, UNK
  10. SKELAXIN [Concomitant]
     Indication: PAIN
  11. LOVAZA [Concomitant]
  12. CALCIUM WITH VITAMIN D [Concomitant]
  13. TYLENOL (CAPLET) [Concomitant]
  14. LEVOBUNOLOL HCL [Concomitant]

REACTIONS (5)
  - BLINDNESS [None]
  - CONSTIPATION [None]
  - MACULAR DEGENERATION [None]
  - VISION BLURRED [None]
  - VISUAL ACUITY REDUCED [None]
